FAERS Safety Report 8728688 (Version 2)
Quarter: 2012Q4

REPORT INFORMATION
  Report Type: 
  Country: JP (occurrence: JP)
  Receive Date: 20120817
  Receipt Date: 20121003
  Transmission Date: 20130627
  Serious: Yes (Hospitalization)
  Sender: FDA-Public Use
  Company Number: PHHY2012JP069447

PATIENT
  Age: 64 Year
  Sex: Female
  Weight: 55 kg

DRUGS (5)
  1. OXALIPLATIN [Suspect]
     Dosage: 130 mg, UNK
     Route: 041
  2. CALCIUM LEVOFOLINATE [Suspect]
     Dosage: 300 mg, UNK
     Route: 041
  3. 5-FLUOROURACIL [Suspect]
     Dosage: 600 mg, UNK
     Route: 042
  4. 5-FLUOROURACIL [Suspect]
     Dosage: 3600 mg, UNK
  5. BEVACIZUMAB [Suspect]
     Dosage: 280 mg, UNK
     Route: 042

REACTIONS (6)
  - Ileus [Recovered/Resolved]
  - Inflammation [Recovered/Resolved]
  - Abdominal distension [Recovered/Resolved]
  - Tenderness [Recovered/Resolved]
  - Intestinal stenosis [Recovered/Resolved]
  - Bowel movement irregularity [Unknown]
